FAERS Safety Report 23341672 (Version 1)
Quarter: 2023Q4

REPORT INFORMATION
  Report Type: Spontaneous
  Country: US (occurrence: None)
  Receive Date: 20231226
  Receipt Date: 20231226
  Transmission Date: 20240110
  Serious: Yes (Hospitalization)
  Sender: FDA-Public Use
  Company Number: None

PATIENT
  Age: 55 Year
  Sex: Female

DRUGS (3)
  1. BOSENTAN [Suspect]
     Active Substance: BOSENTAN
     Indication: Pulmonary arterial hypertension
     Dosage: 125 MG 2 TIMES A DAY BY MOUTH?
     Route: 048
     Dates: start: 202207
  2. UPTRAVI [Suspect]
     Active Substance: SELEXIPAG
  3. TADALAFIL [Concomitant]
     Active Substance: TADALAFIL

REACTIONS (4)
  - Therapy interrupted [None]
  - Pneumonia [None]
  - Pulmonary oedema [None]
  - Pericardial effusion [None]

NARRATIVE: CASE EVENT DATE: 20231205
